FAERS Safety Report 4897078-8 (Version None)
Quarter: 2006Q1

REPORT INFORMATION
  Report Type: 
  Country: None (occurrence: None)
  Receive Date: 20060127
  Receipt Date: 20060118
  Transmission Date: 20060701
  Serious: Yes (Hospitalization)
  Sender: FDA-Public Use
  Company Number: 028-20785-05120209

PATIENT
  Age: 66 Year
  Sex: Female

DRUGS (7)
  1. THALOMID [Suspect]
     Indication: MULTIPLE MYELOMA
     Dosage: 200 MG, QHS, ORAL
     Route: 048
     Dates: start: 20050930, end: 20051124
  2. DEXAMETHASONE [Suspect]
     Indication: MULTIPLE MYELOMA
     Dosage: SEE IMAGE
     Route: 048
     Dates: start: 20050906, end: 20051124
  3. DEXAMETHASONE [Suspect]
     Indication: MULTIPLE MYELOMA
     Dosage: SEE IMAGE
     Route: 048
     Dates: start: 20051101
  4. MELOXICAM (MELOXICAM) [Concomitant]
  5. ATENOLOL [Concomitant]
  6. HYDROCHLOROTHIAZIDE WITH TRIAMTERENE (DYAZIDE) [Concomitant]
  7. PANTOPRAZOLE SODIUM [Concomitant]

REACTIONS (5)
  - CEREBRAL ISCHAEMIA [None]
  - FALL [None]
  - HEADACHE [None]
  - HEMIPARESIS [None]
  - VISION BLURRED [None]
